FAERS Safety Report 5414237-6 (Version None)
Quarter: 2007Q3

REPORT INFORMATION
  Report Type: 
  Country: None (occurrence: None)
  Receive Date: 20070814
  Receipt Date: 20070803
  Transmission Date: 20080115
  Serious: Yes (Hospitalization)
  Sender: FDA-Public Use
  Company Number: SE-PFIZER INC-2007064973

PATIENT
  Sex: Female

DRUGS (3)
  1. HYDROXYZINE HYDROCHLORIDE [Suspect]
     Route: 048
     Dates: start: 20070529, end: 20070529
  2. IMOVANE [Suspect]
     Route: 048
     Dates: start: 20070529, end: 20070529
  3. ETHANOL [Suspect]
     Dosage: TEXT:0.8 PER THOUSAND
     Route: 048
     Dates: start: 20070529, end: 20070529

REACTIONS (1)
  - MULTIPLE DRUG OVERDOSE [None]
